FAERS Safety Report 7232084-X (Version None)
Quarter: 2011Q1

REPORT INFORMATION
  Report Type: 
  Country: None (occurrence: None)
  Receive Date: 20110118
  Receipt Date: 20110104
  Transmission Date: 20110831
  Serious: Yes (Hospitalization, Other)
  Sender: FDA-Public Use
  Company Number: CA-ELI_LILLY_AND_COMPANY-CA201011002698

PATIENT
  Sex: Male
  Weight: 115.8 kg

DRUGS (14)
  1. PEMETREXED [Suspect]
     Indication: NON-SMALL CELL LUNG CANCER
     Dosage: 595 MG, OTHER
     Route: 042
     Dates: start: 20100608, end: 20100804
  2. HYDROMORPHONE HCL [Concomitant]
     Dosage: 12 MG, 2/D
     Route: 048
  3. AVAMYS [Concomitant]
     Dosage: 2 D/F, DAILY (1/D)
     Route: 045
  4. NECITUMUMAB (11F8) (LY3012211) [Suspect]
     Indication: NON-SMALL CELL LUNG CANCER
     Dosage: 400 MG, OTHER
     Route: 042
     Dates: start: 20100608, end: 20100810
  5. METFORMIN [Concomitant]
     Dosage: 850 MG, 3/D
     Route: 048
  6. HYDRASENSE [Concomitant]
     Dosage: 2 D/F, 2/D
     Route: 045
  7. PANTOLOC [Concomitant]
     Dosage: 40 MG, DAILY (1/D)
     Route: 048
  8. CRESTOR [Concomitant]
     Dosage: 20 MG, DAILY (1/D)
     Route: 048
  9. SENOKOT [Concomitant]
     Dosage: 1 D/F, AS NEEDED
     Route: 048
  10. ASPIRIN [Concomitant]
     Dosage: 80 MG, DAILY (1/D)
     Route: 048
  11. CISPLATIN [Suspect]
     Indication: NON-SMALL CELL LUNG CANCER
     Dosage: 90 MG, OTHER
     Route: 042
     Dates: start: 20100608, end: 20100804
  12. FOLIC ACID [Concomitant]
     Dosage: 400 UG, DAILY (1/D)
     Route: 048
  13. VITAMIN B-12 [Concomitant]
  14. GLYBURIDE [Concomitant]
     Dosage: 5 MG, DAILY (1/D)
     Route: 048

REACTIONS (1)
  - DEEP VEIN THROMBOSIS [None]
